FAERS Safety Report 9932228 (Version 1)
Quarter: 2014Q1

REPORT INFORMATION
  Report Type: Spontaneous
  Country: US (occurrence: None)
  Receive Date: 20140227
  Receipt Date: 20140227
  Transmission Date: 20141002
  Serious: Yes (Life-Threatening, Hospitalization)
  Sender: FDA-Public Use
  Company Number: None

PATIENT
  Age: 19 Year
  Sex: Female

DRUGS (1)
  1. AMETHIA 0.15 MG/30 MCG [Suspect]
     Indication: ORAL CONTRACEPTION

REACTIONS (3)
  - Pulmonary embolism [None]
  - Sinus tachycardia [None]
  - Blood pressure decreased [None]
